FAERS Safety Report 25547572 (Version 4)
Quarter: 2025Q3

REPORT INFORMATION
  Report Type: Report from Study
  Country: CA (occurrence: CA)
  Receive Date: 20250714
  Receipt Date: 20250805
  Transmission Date: 20251021
  Serious: Yes (Other)
  Sender: TAKEDA
  Company Number: CA-TAKEDA-2025TUS062343

PATIENT
  Sex: Male

DRUGS (7)
  1. VEDOLIZUMAB [Suspect]
     Active Substance: VEDOLIZUMAB
     Indication: Colitis ulcerative
     Dates: start: 20250520, end: 20250708
  2. PREDNISONE [Concomitant]
     Active Substance: PREDNISONE
  3. BISOPROLOL [Concomitant]
     Active Substance: BISOPROLOL
  4. VENLAFAXINE [Concomitant]
     Active Substance: VENLAFAXINE HYDROCHLORIDE
     Indication: Depression
  5. PERINDOPRIL [Concomitant]
     Active Substance: PERINDOPRIL
  6. HYDROCHLOROTHIAZIDE [Concomitant]
     Active Substance: HYDROCHLOROTHIAZIDE
  7. ALLOPURINOL [Concomitant]
     Active Substance: ALLOPURINOL

REACTIONS (2)
  - Haematochezia [Recovering/Resolving]
  - Diarrhoea [Recovering/Resolving]
